FAERS Safety Report 4331771-0 (Version None)
Quarter: 2004Q2

REPORT INFORMATION
  Report Type: 
  Country: None (occurrence: None)
  Receive Date: 20040405
  Receipt Date: 20030707
  Transmission Date: 20050107
  Serious: No
  Sender: FDA-Public Use
  Company Number: US-GLAXOSMITHKLINE-A0416394A

PATIENT

DRUGS (2)
  1. FLOVENT [Suspect]
     Indication: NEONATAL RESPIRATORY DISTRESS SYNDROME
     Dosage: 110MCG TWICE PER DAY
     Route: 055
  2. MECHANICAL VENTILATION [Concomitant]
     Indication: NEONATAL RESPIRATORY DISTRESS SYNDROME

REACTIONS (1)
  - DRUG INEFFECTIVE [None]
